FAERS Safety Report 8159053 (Version 2)
Quarter: 2015Q1

REPORT INFORMATION
  Report Type: Spontaneous
  Country: US (occurrence: US)
  Receive Date: 20110927
  Receipt Date: 20150331
  Transmission Date: 20150721
  Serious: Yes (Life-Threatening, Hospitalization, Congenital Anomaly, Other)
  Sender: FDA-Public Use
  Company Number: US-ELI_LILLY_AND_COMPANY-US201109004162

PATIENT

DRUGS (2)
  1. PROZAC [Suspect]
     Active Substance: FLUOXETINE HYDROCHLORIDE
     Indication: PRODUCT USED FOR UNKNOWN INDICATION
     Route: 064
  2. PROZAC [Suspect]
     Active Substance: FLUOXETINE HYDROCHLORIDE
     Indication: PRODUCT USED FOR UNKNOWN INDICATION
     Route: 064

REACTIONS (14)
  - Fallot^s tetralogy [Unknown]
  - Encephalopathy [Unknown]
  - Umbilical cord around neck [Recovered/Resolved]
  - Aphasia [Recovering/Resolving]
  - Abnormal behaviour [Unknown]
  - Attention deficit/hyperactivity disorder [Unknown]
  - Dyspraxia [Recovering/Resolving]
  - Arteriovenous fistula [Recovered/Resolved]
  - Cardiac failure congestive [Unknown]
  - Speech disorder [Recovering/Resolving]
  - Developmental delay [Unknown]
  - Foetal exposure during pregnancy [Recovered/Resolved]
  - Congenital pulmonary valve atresia [Unknown]
  - Ventricular septal defect [Recovered/Resolved]
